FAERS Safety Report 9704214 (Version 1)
Quarter: 2013Q4

REPORT INFORMATION
  Report Type: Spontaneous
  Country: US (occurrence: US)
  Receive Date: 20131122
  Receipt Date: 20131122
  Transmission Date: 20140711
  Serious: Yes (Other)
  Sender: FDA-Public Use
  Company Number: US-009507513-1311USA008200

PATIENT
  Age: 58 Year
  Sex: Male

DRUGS (4)
  1. SINGULAIR [Suspect]
     Indication: ASTHMA
     Route: 048
  2. SINGULAIR [Suspect]
     Indication: MULTIPLE ALLERGIES
     Route: 048
  3. SYNTHROID [Concomitant]
     Indication: THYROID HORMONE REPLACEMENT THERAPY
     Route: 048
  4. LISINOPRIL [Concomitant]
     Indication: BLOOD PRESSURE
     Route: 048

REACTIONS (6)
  - Asthma [Unknown]
  - Drug ineffective [Unknown]
  - Lacrimation increased [Unknown]
  - Product quality issue [Unknown]
  - Product substitution issue [Unknown]
  - Rhinorrhoea [Unknown]
